FAERS Safety Report 6744350-2 (Version None)
Quarter: 2010Q2

REPORT INFORMATION
  Report Type: 
  Country: None (occurrence: None)
  Receive Date: 20100526
  Receipt Date: 20100526
  Transmission Date: 20101027
  Serious: Yes (Hospitalization)
  Sender: FDA-Public Use
  Company Number: None

PATIENT
  Age: 48 Year
  Sex: Male

DRUGS (1)
  1. AZATHIOPRINE SODIUM [Suspect]
     Indication: CROHN'S DISEASE
     Dosage: 50 MG EVERY DAY PO
     Route: 048
     Dates: start: 20100111, end: 20100129

REACTIONS (2)
  - DERMATITIS ALLERGIC [None]
  - PSORIASIS [None]
